FAERS Safety Report 19242715 (Version 3)
Quarter: 2021Q2

REPORT INFORMATION
  Report Type: Report from Study
  Country: None (occurrence: US)
  Receive Date: 20210510
  Receipt Date: 20210521
  Transmission Date: 20210717
  Serious: Yes (Other)
  Sender: FDA-Public Use
  Company Number: US-ABBVIE-21K-163-3896509-00

PATIENT
  Sex: Female
  Weight: 108.96 kg

DRUGS (2)
  1. SKYRIZI [Suspect]
     Active Substance: RISANKIZUMAB-RZAA
     Indication: PSORIASIS
     Route: 058
     Dates: start: 2019
  2. SKYRIZI [Suspect]
     Active Substance: RISANKIZUMAB-RZAA
     Indication: PSORIASIS

REACTIONS (8)
  - Hypoaesthesia [Recovered/Resolved]
  - Psoriasis [Unknown]
  - Pain in extremity [Recovered/Resolved]
  - Hypoaesthesia [Unknown]
  - Carpal tunnel syndrome [Recovered/Resolved]
  - Off label use [Unknown]
  - COVID-19 [Unknown]
  - Synovial cyst [Recovered/Resolved]

NARRATIVE: CASE EVENT DATE: 2020
